FAERS Safety Report 8162279-2 (Version None)
Quarter: 2012Q1

REPORT INFORMATION
  Report Type: 
  Country: None (occurrence: None)
  Receive Date: 20120221
  Receipt Date: 20120203
  Transmission Date: 20120608
  Serious: Yes (Other)
  Sender: FDA-Public Use
  Company Number: JPI-P-019672

PATIENT
  Age: 34 Year
  Sex: Female
  Weight: 143 kg

DRUGS (4)
  1. XYREM [Suspect]
     Indication: SOMNOLENCE
     Dosage: (2 IN 1 D),ORAL, 4 G/M (4 GM,1 IN 1 D),ORAL
     Route: 048
     Dates: start: 20111123, end: 20111201
  2. XYREM [Suspect]
     Indication: NARCOLEPSY
     Dosage: (2 IN 1 D),ORAL, 4 G/M (4 GM,1 IN 1 D),ORAL
     Route: 048
     Dates: start: 20111123, end: 20111201
  3. XYREM [Suspect]
     Indication: SOMNOLENCE
     Dosage: (2 IN 1 D),ORAL, 4 G/M (4 GM,1 IN 1 D),ORAL
     Route: 048
     Dates: start: 20111201, end: 20120125
  4. XYREM [Suspect]
     Indication: NARCOLEPSY
     Dosage: (2 IN 1 D),ORAL, 4 G/M (4 GM,1 IN 1 D),ORAL
     Route: 048
     Dates: start: 20111201, end: 20120125

REACTIONS (8)
  - PARAESTHESIA [None]
  - HEAD DISCOMFORT [None]
  - THROMBOSIS [None]
  - CARTILAGE INJURY [None]
  - OEDEMA PERIPHERAL [None]
  - MUSCLE TIGHTNESS [None]
  - INAPPROPRIATE AFFECT [None]
  - VOMITING [None]
